FAERS Safety Report 24656364 (Version 4)
Quarter: 2024Q4

REPORT INFORMATION
  Report Type: Spontaneous
  Country: JP (occurrence: JP)
  Receive Date: 20241124
  Receipt Date: 20241228
  Transmission Date: 20250114
  Serious: Yes (Death, Other)
  Sender: ARDELYX
  Company Number: JP-ARDELYX-2024ARDX008420

PATIENT
  Age: 6 Decade
  Sex: Male

DRUGS (1)
  1. TENAPANOR HYDROCHLORIDE [Suspect]
     Active Substance: TENAPANOR HYDROCHLORIDE
     Indication: Product used for unknown indication
     Dosage: 5 MILLIGRAM
     Route: 048
     Dates: start: 20241101, end: 20241110

REACTIONS (4)
  - Arrhythmia [Fatal]
  - Hyperkalaemia [Fatal]
  - Hypoglycaemia [Fatal]
  - Diarrhoea [Unknown]

NARRATIVE: CASE EVENT DATE: 20241101
